FAERS Safety Report 8347036-6 (Version None)
Quarter: 2012Q2

REPORT INFORMATION
  Report Type: 
  Country: None (occurrence: None)
  Receive Date: 20120509
  Receipt Date: 20120505
  Transmission Date: 20120825
  Serious: Yes (Other)
  Sender: FDA-Public Use
  Company Number: PHHY2012CN038531

PATIENT
  Age: 60 Year
  Sex: Female

DRUGS (3)
  1. ZOLEDRONOC ACID [Suspect]
     Indication: OSTEOPOROSIS
     Dosage: 5 MG / 100ML
     Route: 042
     Dates: start: 20120503
  2. CALCIUM [Concomitant]
     Route: 048
  3. VITAMIN D [Concomitant]

REACTIONS (7)
  - OROPHARYNGEAL PAIN [None]
  - HYPOPHAGIA [None]
  - INFLUENZA LIKE ILLNESS [None]
  - PYREXIA [None]
  - SPEECH DISORDER [None]
  - MYALGIA [None]
  - MUSCULOSKELETAL CHEST PAIN [None]
